FAERS Safety Report 24301244 (Version 1)
Quarter: 2024Q3

REPORT INFORMATION
  Report Type: Spontaneous
  Country: NL (occurrence: NL)
  Receive Date: 20240910
  Receipt Date: 20240910
  Transmission Date: 20241017
  Serious: Yes (Hospitalization)
  Sender: TEVA
  Company Number: None

PATIENT
  Age: 47 Year
  Sex: Female
  Weight: 108 kg

DRUGS (2)
  1. AMOXICILLIN\CLAVULANIC ACID [Suspect]
     Active Substance: AMOXICILLIN\CLAVULANIC ACID
     Indication: Cellulitis
     Dosage: 4X DAILY IV 1200MG/120ML: INJPDR 1000/200MG / BRAND NAME NOT SPECIFIED
     Route: 042
     Dates: start: 20240731
  2. FLUCLOXACILLIN [Suspect]
     Active Substance: FLUCLOXACILLIN
     Indication: Cellulitis
     Dosage: 4X PER DAY 2 PIECES: FLUCLOXACILLIN PDR V INJVLST / INJECTION POWDER VIAL
     Route: 065
     Dates: start: 20240804, end: 20240807

REACTIONS (4)
  - Drug eruption [Recovering/Resolving]
  - Pyrexia [Unknown]
  - Nausea [Unknown]
  - Vomiting [Unknown]
